FAERS Safety Report 8554559-3 (Version None)
Quarter: 2012Q3

REPORT INFORMATION
  Report Type: 
  Country: None (occurrence: None)
  Receive Date: 20120726
  Receipt Date: 20120726
  Transmission Date: 20120928
  Serious: Yes (Other)
  Sender: FDA-Public Use
  Company Number: None

PATIENT
  Age: 42 Year
  Sex: Female
  Weight: 81.6475 kg

DRUGS (1)
  1. RISPERIDONE [Suspect]
     Indication: BIPOLAR I DISORDER
     Dates: start: 20120716, end: 20120723

REACTIONS (22)
  - NAUSEA [None]
  - OROPHARYNGEAL PAIN [None]
  - NERVOUSNESS [None]
  - HEART RATE IRREGULAR [None]
  - DYSKINESIA [None]
  - DIZZINESS [None]
  - FATIGUE [None]
  - RHINORRHOEA [None]
  - MUSCLE SPASMS [None]
  - MUSCLE TWITCHING [None]
  - MUSCULOSKELETAL STIFFNESS [None]
  - HYPERHIDROSIS [None]
  - MYALGIA [None]
  - CONSTIPATION [None]
  - DISTURBANCE IN ATTENTION [None]
  - HEART RATE INCREASED [None]
  - SPEECH DISORDER [None]
  - SOMNOLENCE [None]
  - WEIGHT INCREASED [None]
  - INCREASED APPETITE [None]
  - DRY SKIN [None]
  - PALPITATIONS [None]
